FAERS Safety Report 8440680-7 (Version None)
Quarter: 2012Q2

REPORT INFORMATION
  Report Type: 
  Country: None (occurrence: None)
  Receive Date: 20120615
  Receipt Date: 20120607
  Transmission Date: 20120825
  Serious: Yes (Hospitalization, Other)
  Sender: FDA-Public Use
  Company Number: US-BAYER-2011-082394

PATIENT
  Age: 47 Year
  Sex: Female
  Weight: 91 kg

DRUGS (16)
  1. ESTRACE [Concomitant]
     Dosage: 0.01 %, UNK
     Route: 067
     Dates: start: 20050111
  2. YASMIN [Suspect]
     Indication: MENOPAUSAL SYMPTOMS
  3. DARVOCET-N 50 [Concomitant]
     Dosage: 1-2 TABS EVERY 4-6 HOURS AS NEEDED
     Route: 048
     Dates: start: 20050411
  4. PREMARIN [Concomitant]
     Dosage: 0.625 MG, UNK
     Route: 067
     Dates: start: 20050111
  5. DAYPRO [Concomitant]
     Dosage: 600 MG, DAILY
     Route: 048
     Dates: start: 20041102
  6. TESSALON [Concomitant]
     Dosage: 100 MG, TID
     Route: 048
     Dates: start: 20040227
  7. VESICARE [Concomitant]
     Indication: BLADDER DISORDER
     Dosage: 5 MG DAILY
     Route: 048
     Dates: start: 20050209, end: 20050601
  8. VESICARE [Concomitant]
     Indication: MICTURITION URGENCY
  9. LEVAQUIN [Concomitant]
     Dosage: 500 MG, DAILY
     Route: 048
  10. AVANDIA [Concomitant]
     Indication: DIABETES MELLITUS
  11. ALBUTEROL [Concomitant]
     Dosage: 90 MCG 2 PUFFS EVERY 4 HOURS
     Route: 045
     Dates: start: 20040227
  12. YASMIN [Suspect]
     Indication: PREMENSTRUAL SYNDROME
     Dosage: UNK
     Dates: start: 20041101, end: 20050414
  13. YASMIN [Suspect]
     Indication: MENSTRUATION IRREGULAR
  14. SINUVENT PE [Concomitant]
     Dosage: 600-15 MG
     Route: 048
     Dates: start: 20040226
  15. VOLTAREN [Concomitant]
     Dosage: 75 MG, UNK
     Route: 048
     Dates: start: 20040426
  16. LEXAPRO [Concomitant]
     Dosage: 10 MG, DAILY
     Route: 048
     Dates: start: 20031021

REACTIONS (26)
  - URINARY INCONTINENCE [None]
  - ANXIETY [None]
  - JUDGEMENT IMPAIRED [None]
  - CEREBROVASCULAR ACCIDENT [None]
  - APHASIA [None]
  - BALANCE DISORDER [None]
  - RENAL PAIN [None]
  - DEPRESSION [None]
  - HEADACHE [None]
  - MEMORY IMPAIRMENT [None]
  - GENERAL PHYSICAL HEALTH DETERIORATION [None]
  - HEMIPARESIS [None]
  - COORDINATION ABNORMAL [None]
  - VISUAL FIELD DEFECT [None]
  - TYPE 2 DIABETES MELLITUS [None]
  - COGNITIVE DISORDER [None]
  - HYPOAESTHESIA [None]
  - VISUAL IMPAIRMENT [None]
  - PAIN [None]
  - HEMIPLEGIA [None]
  - DYSARTHRIA [None]
  - DISTURBANCE IN ATTENTION [None]
  - EMOTIONAL DISTRESS [None]
  - INJURY [None]
  - VIITH NERVE PARALYSIS [None]
  - BACK PAIN [None]
